FAERS Safety Report 10249234 (Version 2)
Quarter: 2014Q3

REPORT INFORMATION
  Report Type: Spontaneous
  Country: FR (occurrence: FR)
  Receive Date: 20140620
  Receipt Date: 20140730
  Transmission Date: 20150326
  Serious: Yes (Hospitalization)
  Sender: FDA-Public Use
  Company Number: FR-MERCK-1406FRA005654

PATIENT
  Age: 58 Year
  Sex: Female

DRUGS (7)
  1. POLARAMINE [Suspect]
     Active Substance: DEXCHLORPHENIRAMINE MALEATE
     Dosage: 5 MG, QD
     Route: 042
     Dates: start: 20140514, end: 20140514
  2. EMEND [Suspect]
     Active Substance: APREPITANT
     Dosage: 125 MG, QD
     Route: 048
     Dates: start: 20140514, end: 20140514
  3. EMEND [Suspect]
     Active Substance: APREPITANT
     Dosage: 80 MG, QD
     Route: 048
     Dates: start: 20140515, end: 20140516
  4. CARBOPLATIN. [Suspect]
     Active Substance: CARBOPLATIN
     Dosage: 450 MG, ONCE
     Route: 042
     Dates: start: 20140514, end: 20140514
  5. GEMZAR [Suspect]
     Active Substance: GEMCITABINE HYDROCHLORIDE
     Dosage: 1320 MG, ONCE
     Route: 042
     Dates: start: 20140514, end: 20140514
  6. AERIUS [Suspect]
     Active Substance: DESLORATADINE
     Dosage: 5 MG, QD
     Route: 048
     Dates: start: 20140512, end: 20140514
  7. OLIMEL [Suspect]
     Active Substance: AMINO ACIDS\DEXTROSE\SOYBEAN OIL
     Dosage: 1500 ML, QD
     Route: 042
     Dates: start: 20140507, end: 20140518

REACTIONS (1)
  - Thrombocytopenia [Recovered/Resolved]

NARRATIVE: CASE EVENT DATE: 20140518
